FAERS Safety Report 6187287-2 (Version None)
Quarter: 2009Q2

REPORT INFORMATION
  Report Type: 
  Country: None (occurrence: None)
  Receive Date: 20090512
  Receipt Date: 20090430
  Transmission Date: 20091009
  Serious: Yes (Hospitalization, Other)
  Sender: FDA-Public Use
  Company Number: US-JNJFOC-20090500283

PATIENT
  Sex: Male
  Weight: 136.08 kg

DRUGS (6)
  1. REMICADE [Suspect]
     Indication: RHEUMATOID ARTHRITIS
     Route: 042
  2. REMICADE [Suspect]
     Indication: CROHN'S DISEASE
     Route: 042
  3. REMICADE [Suspect]
     Indication: COLITIS ULCERATIVE
     Dosage: RECEIVED INFLIXIMAB INFUSION X 1YEAR, 5 YEARS AGO
     Route: 042
  4. NAPROXEN [Suspect]
     Indication: RHEUMATOID ARTHRITIS
  5. ASCRIPTIN A/D [Suspect]
     Indication: RHEUMATOID ARTHRITIS
  6. NSAIDS [Concomitant]

REACTIONS (9)
  - CONSTIPATION [None]
  - FLATULENCE [None]
  - GASTROINTESTINAL HAEMORRHAGE [None]
  - GASTROINTESTINAL PAIN [None]
  - GASTROINTESTINAL SOUNDS ABNORMAL [None]
  - HOSPITALISATION [None]
  - JOINT SWELLING [None]
  - PAIN [None]
  - VOMITING [None]
